FAERS Safety Report 4624586-7 (Version None)
Quarter: 2005Q1

REPORT INFORMATION
  Report Type: 
  Country: None (occurrence: None)
  Receive Date: 20050107
  Receipt Date: 20041119
  Transmission Date: 20050727
  Serious: No
  Sender: FDA-Public Use
  Company Number: 235741K04USA

PATIENT
  Age: 45 Year
  Sex: Female

DRUGS (4)
  1. REBIF [Suspect]
     Indication: MULTIPLE SCLEROSIS
     Dosage: 44 MCG, 3 IN 1 WEEKS  SUBCUTANEOUS
     Route: 058
     Dates: start: 20040623
  2. EFFEXOR [Concomitant]
  3. TRAZODONE HCL [Concomitant]
  4. IBUPROFEN [Concomitant]

REACTIONS (5)
  - BACK PAIN [None]
  - DEPRESSION [None]
  - FALL [None]
  - HYPOREFLEXIA [None]
  - MORBID THOUGHTS [None]
